FAERS Safety Report 4600591-1 (Version None)
Quarter: 2005Q1

REPORT INFORMATION
  Report Type: 
  Country: None (occurrence: None)
  Receive Date: 20050127
  Receipt Date: 20041008
  Transmission Date: 20050727
  Serious: No
  Sender: FDA-Public Use
  Company Number: USA041080654

PATIENT
  Sex: Female

DRUGS (1)
  1. STRATTERA [Suspect]
     Dosage: 40 MG
     Dates: start: 20040926

REACTIONS (3)
  - DIZZINESS [None]
  - FEELING ABNORMAL [None]
  - SOMNOLENCE [None]
